FAERS Safety Report 6635777-8 (Version None)
Quarter: 2010Q1

REPORT INFORMATION
  Report Type: 
  Country: None (occurrence: None)
  Receive Date: 20100316
  Receipt Date: 20100304
  Transmission Date: 20100710
  Serious: Yes (Hospitalization)
  Sender: FDA-Public Use
  Company Number: US-BIOGENIDEC-2009BI036406

PATIENT
  Age: 58 Year
  Sex: Female
  Weight: 63 kg

DRUGS (7)
  1. TYSABRI [Suspect]
     Indication: MULTIPLE SCLEROSIS
     Route: 042
     Dates: start: 20080905, end: 20091030
  2. NITROFURANTOIN [Concomitant]
     Indication: DRUG USE FOR UNKNOWN INDICATION
  3. CLIMARA [Concomitant]
     Indication: DRUG USE FOR UNKNOWN INDICATION
  4. RECLAST [Concomitant]
     Indication: OSTEOPOROSIS
  5. CALCIUM WITH VITAMIN D3 [Concomitant]
     Indication: OSTEOPOROSIS
  6. VITAMIN D3 [Concomitant]
     Indication: OSTEOPOROSIS
  7. FLAXSEED OIL [Concomitant]
     Indication: DRUG USE FOR UNKNOWN INDICATION

REACTIONS (1)
  - COLON CANCER METASTATIC [None]
